FAERS Safety Report 12720530 (Version 1)
Quarter: 2016Q3

REPORT INFORMATION
  Report Type: Other
  Country: JP (occurrence: JP)
  Receive Date: 20160907
  Receipt Date: 20160907
  Transmission Date: 20161109
  Serious: Yes (Other)
  Sender: FDA-Public Use
  Company Number: JP-ACTELION-A-CH2016-141830

PATIENT
  Age: 59 Year
  Sex: Female

DRUGS (1)
  1. BOSENTAN. [Suspect]
     Active Substance: BOSENTAN
     Indication: SCLERODERMA ASSOCIATED DIGITAL ULCER
     Route: 048

REACTIONS (4)
  - Gangrene [Unknown]
  - Osteotomy [Unknown]
  - Peripheral artery occlusion [Unknown]
  - Mental status changes [Unknown]
